FAERS Safety Report 18249477 (Version 7)
Quarter: 2023Q2

REPORT INFORMATION
  Report Type: Spontaneous
  Country: US (occurrence: US)
  Receive Date: 20200909
  Receipt Date: 20230414
  Transmission Date: 20230721
  Serious: No
  Sender: FDA-Public Use
  Company Number: US-PFIZER INC-2020343253

PATIENT
  Age: 38 Year
  Sex: Female
  Weight: 65.77 kg

DRUGS (14)
  1. XELJANZ [Suspect]
     Active Substance: TOFACITINIB CITRATE
     Indication: Alopecia areata
     Dosage: 10 MG
     Dates: end: 202006
  2. XELJANZ [Suspect]
     Active Substance: TOFACITINIB CITRATE
     Dosage: 10 MG, 2X/DAY
     Route: 048
     Dates: start: 20201022
  3. XELJANZ [Suspect]
     Active Substance: TOFACITINIB CITRATE
     Dosage: 10 MG PO BID [TWICE A DAY] (60 TABLETS) (UC ONLY)
     Route: 048
     Dates: end: 20211006
  4. XELJANZ [Suspect]
     Active Substance: TOFACITINIB CITRATE
     Dosage: 10 MG, 2X/DAY
     Route: 048
     Dates: start: 20220217
  5. ASPIRIN [Concomitant]
     Active Substance: ASPIRIN
     Indication: Thrombosis prophylaxis
     Dosage: 81 MG (THREE TIMES A WEEK)
     Route: 048
  6. ALLEGRA [Concomitant]
     Active Substance: FEXOFENADINE HYDROCHLORIDE
     Dosage: UNK
  7. ROGAINE [Concomitant]
     Active Substance: MINOXIDIL
     Dosage: APPLY TO AFFECTED AREA ONCE DAILY, TOPICAL
     Route: 061
  8. LATISSE [Concomitant]
     Active Substance: BIMATOPROST
     Dosage: 1 DROP, 1X/DAY
     Dates: start: 20210428
  9. VITAMIN D3 [Concomitant]
     Active Substance: CHOLECALCIFEROL
     Dosage: 400 IU, 1X/DAY
     Route: 048
  10. SYNTHROID [Concomitant]
     Active Substance: LEVOTHYROXINE SODIUM
     Indication: Hypothyroidism
     Dosage: 25 UG, DAILY (BEFORE BREAKFAST)
     Route: 048
  11. CLARITIN [Concomitant]
     Active Substance: LORATADINE
     Dosage: UNK, 1X/DAY
     Route: 048
  12. PRENATAL VITAMINS [ASCORBIC ACID;BIOTIN;MINERALS NOS;NICOTINIC ACID;RE [Concomitant]
     Dosage: UNK, 1X/DAY
     Route: 048
  13. RETIN-A [Concomitant]
     Active Substance: TRETINOIN
     Dosage: UNK, 1X/DAY (APPLY TO ENTIRE FACE EACH NIGHT AS TOLERATED)
     Dates: start: 20210507
  14. TEMOVATE [Concomitant]
     Active Substance: CLOBETASOL PROPIONATE
     Dosage: UNK (THREE TIMES A WEEK TO SCALP AT NIGHT OVER MINOXIDIL)
     Dates: start: 20210507

REACTIONS (9)
  - Drug hypersensitivity [Unknown]
  - Eosinophilia [Unknown]
  - Feeling abnormal [Unknown]
  - Vitamin D decreased [Unknown]
  - Hyperlipidaemia [Unknown]
  - Off label use [Unknown]
  - Drug effective for unapproved indication [Unknown]
  - Drug ineffective for unapproved indication [Unknown]
  - Exposure during pregnancy [Unknown]
